FAERS Safety Report 12840332 (Version 1)
Quarter: 2016Q4

REPORT INFORMATION
  Report Type: Spontaneous
  Country: US (occurrence: US)
  Receive Date: 20161012
  Receipt Date: 20161012
  Transmission Date: 20170207
  Serious: Yes (Other)
  Sender: FDA-Public Use
  Company Number: US-ELI_LILLY_AND_COMPANY-US201610001697

PATIENT
  Age: 62 Year
  Sex: Female

DRUGS (1)
  1. EFFIENT [Suspect]
     Active Substance: PRASUGREL HYDROCHLORIDE
     Indication: SURGERY
     Dosage: UNK, UNKNOWN
     Route: 065

REACTIONS (2)
  - Deep vein thrombosis [Unknown]
  - Peritoneal haemorrhage [Recovered/Resolved]
